FAERS Safety Report 6328305-8 (Version None)
Quarter: 2009Q3

REPORT INFORMATION
  Report Type: 
  Country: None (occurrence: None)
  Receive Date: 20090825
  Receipt Date: 20090501
  Transmission Date: 20100115
  Serious: No
  Sender: FDA-Public Use
  Company Number: US-ABBOTT-09P-163-0571483-00

PATIENT
  Age: 81 Year
  Sex: Female
  Weight: 63.56 kg

DRUGS (3)
  1. SYNTHROID [Suspect]
     Indication: HYPOTHYROIDISM
     Dates: end: 20090401
  2. SYNTHROID [Suspect]
     Dates: start: 20090401
  3. TOPROL-XL [Concomitant]
     Indication: HYPERTENSION

REACTIONS (1)
  - BLOOD THYROID STIMULATING HORMONE INCREASED [None]
